FAERS Safety Report 5695152-X (Version None)
Quarter: 2008Q2

REPORT INFORMATION
  Report Type: 
  Country: None (occurrence: None)
  Receive Date: 20080404
  Receipt Date: 20080325
  Transmission Date: 20081010
  Serious: Yes (Death, Hospitalization, Other)
  Sender: FDA-Public Use
  Company Number: US-ABBOTT-08P-163-0441108-00

PATIENT
  Sex: Male

DRUGS (9)
  1. DEPAKOTE [Suspect]
     Indication: POST-TRAUMATIC STRESS DISORDER
     Route: 048
     Dates: start: 20061001
  2. DEPAKOTE [Suspect]
     Indication: BIPOLAR DISORDER
  3. DEPAKOTE [Suspect]
     Indication: SCHIZOPHRENIA
  4. DEPAKOTE [Suspect]
     Indication: PANIC ATTACK
  5. ARIPIPRAZOLE [Suspect]
     Indication: POST-TRAUMATIC STRESS DISORDER
  6. ARIPIPRAZOLE [Suspect]
     Indication: DEPRESSION
  7. OLANZAPINE [Suspect]
     Indication: POST-TRAUMATIC STRESS DISORDER
  8. OLANZAPINE [Suspect]
     Indication: DEPRESSION
  9. PEPCIDDUAL [Concomitant]
     Indication: DYSPEPSIA
     Route: 048

REACTIONS (12)
  - BIPOLAR DISORDER [None]
  - DEEP VEIN THROMBOSIS [None]
  - DEPRESSION [None]
  - DYSPNOEA [None]
  - INSOMNIA [None]
  - PALPITATIONS [None]
  - PANIC ATTACK [None]
  - PULMONARY EMBOLISM [None]
  - SOMNOLENCE [None]
  - UNRESPONSIVE TO STIMULI [None]
  - WEIGHT DECREASED [None]
  - WEIGHT INCREASED [None]
